FAERS Safety Report 23343895 (Version 3)
Quarter: 2024Q1

REPORT INFORMATION
  Report Type: Spontaneous
  Country: US (occurrence: US)
  Receive Date: 20231227
  Receipt Date: 20240327
  Transmission Date: 20240409
  Serious: No
  Sender: FDA-Public Use
  Company Number: US-BRISTOL-MYERS SQUIBB COMPANY-2023-188105

PATIENT
  Age: 55 Year
  Sex: Female

DRUGS (3)
  1. ORENCIA [Suspect]
     Active Substance: ABATACEPT
     Indication: Rheumatoid arthritis
     Dosage: ONGOING
     Route: 058
     Dates: start: 202312
  2. ORENCIA [Suspect]
     Active Substance: ABATACEPT
     Indication: Arthropathy
  3. ORENCIA [Suspect]
     Active Substance: ABATACEPT
     Indication: Osteoarthritis

REACTIONS (4)
  - Pain [Unknown]
  - Gait disturbance [Unknown]
  - General physical health deterioration [Unknown]
  - Psoriasis [Unknown]
